FAERS Safety Report 8092964-2 (Version None)
Quarter: 2012Q1

REPORT INFORMATION
  Report Type: 
  Country: None (occurrence: None)
  Receive Date: 20120131
  Receipt Date: 20120123
  Transmission Date: 20120608
  Serious: Yes (Death)
  Sender: FDA-Public Use
  Company Number: US-ACTELION-A-NJ2012-60199

PATIENT

DRUGS (19)
  1. GLUCOPHAGE [Concomitant]
  2. OXYCODONE HCL [Concomitant]
  3. TYLENOL-500 [Concomitant]
  4. COUMADIN [Concomitant]
  5. SPIRONOLACTONE [Concomitant]
  6. HYTRIN [Concomitant]
  7. TRACLEER [Suspect]
     Indication: PULMONARY ARTERIAL HYPERTENSION
     Dosage: 125 MG, BID
     Route: 048
     Dates: start: 20090901, end: 20120120
  8. TRACLEER [Suspect]
     Dosage: 62.5 MG, BID
     Route: 048
     Dates: start: 20090401, end: 20090901
  9. JANUVIA [Concomitant]
  10. MIRALAX [Concomitant]
  11. REVATIO [Concomitant]
  12. GLUCOSAMINE [Concomitant]
  13. PREDNISONE TAB [Concomitant]
  14. BUMEX [Concomitant]
  15. SENOKOT [Concomitant]
  16. ZAROXOLYN [Concomitant]
  17. ABIRATERONE [Concomitant]
  18. CYANOCOBALAMIN [Concomitant]
  19. FEROSOL [Concomitant]

REACTIONS (1)
  - CARDIAC ARREST [None]
